FAERS Safety Report 5169554-4 (Version None)
Quarter: 2006Q4

REPORT INFORMATION
  Report Type: 
  Country: None (occurrence: None)
  Receive Date: 20061204
  Receipt Date: 20061129
  Transmission Date: 20070319
  Serious: Yes (Death, Other)
  Sender: FDA-Public Use
  Company Number: HQWYE868613JUL06

PATIENT
  Age: 57 Year
  Sex: Female
  Weight: 49.4 kg

DRUGS (1)
  1. CYCLOSPORINE [Suspect]
     Indication: PROPHYLAXIS AGAINST TRANSPLANT REJECTION
     Dosage: 125 MG 2X PER 1 DAY, ORAL
     Route: 048
     Dates: start: 20050601

REACTIONS (5)
  - ANAEMIA [None]
  - IMMUNOSUPPRESSION [None]
  - LUNG ADENOCARCINOMA METASTATIC [None]
  - METASTASES TO ADRENALS [None]
  - METASTASES TO MUSCLE [None]
